FAERS Safety Report 7669904-0 (Version None)
Quarter: 2011Q3

REPORT INFORMATION
  Report Type: 
  Country: None (occurrence: None)
  Receive Date: 20110808
  Receipt Date: 20110805
  Transmission Date: 20111222
  Serious: Yes (Other)
  Sender: FDA-Public Use
  Company Number: US-PFIZER INC-2011180004

PATIENT
  Sex: Female
  Weight: 58.957 kg

DRUGS (4)
  1. ZOCOR [Concomitant]
     Indication: BLOOD CHOLESTEROL INCREASED
     Dosage: UNK
  2. ACTONEL [Concomitant]
     Dosage: UNK, WEEKLY
  3. FEMARA [Concomitant]
     Indication: BREAST CANCER
     Dosage: UNK
  4. PREPARATION H HEMORRHOIDAL SUPPOSITORIES [Suspect]
     Indication: HAEMORRHOIDS
     Dosage: UNK, 2X/DAY
     Route: 054
     Dates: start: 20110802

REACTIONS (3)
  - HAEMORRHOIDS [None]
  - IRRITABILITY [None]
  - RECTAL HAEMORRHAGE [None]
